FAERS Safety Report 7890243-7 (Version None)
Quarter: 2011Q4

REPORT INFORMATION
  Report Type: 
  Country: None (occurrence: None)
  Receive Date: 20111103
  Receipt Date: 20110802
  Transmission Date: 20120403
  Serious: No
  Sender: FDA-Public Use
  Company Number: US-AMGEN-USASP2010009688

PATIENT
  Age: 77 Year
  Sex: Female

DRUGS (4)
  1. ENBREL [Suspect]
     Indication: PSORIASIS
     Dosage: 50 MG, 2 TIMES/WK
     Dates: start: 20070601, end: 20090801
  2. STELARA [Concomitant]
  3. ENBREL [Suspect]
     Indication: PSORIATIC ARTHROPATHY
     Dosage: 50 MG, 2 TIMES/WK
     Dates: start: 20110101, end: 20110301
  4. HUMIRA [Concomitant]

REACTIONS (5)
  - VISUAL ACUITY REDUCED [None]
  - DEVICE MALFUNCTION [None]
  - INJECTION SITE REACTION [None]
  - VISUAL IMPAIRMENT [None]
  - CATARACT [None]
